APPROVED DRUG PRODUCT: DAPTOMYCIN
Active Ingredient: DAPTOMYCIN
Strength: 500MG/VIAL
Dosage Form/Route: POWDER;INTRAVENOUS
Application: A212022 | Product #001
Applicant: JIANGSU HENGRUI PHARMACEUTICALS CO LTD
Approved: Aug 22, 2019 | RLD: No | RS: No | Type: DISCN